FAERS Safety Report 6414555-9 (Version None)
Quarter: 2009Q4

REPORT INFORMATION
  Report Type: 
  Country: None (occurrence: None)
  Receive Date: 20091026
  Receipt Date: 20091013
  Transmission Date: 20100525
  Serious: Yes (Other)
  Sender: FDA-Public Use
  Company Number: GB-ELI_LILLY_AND_COMPANY-GB200910003081

PATIENT
  Age: 40 Year
  Sex: Male

DRUGS (8)
  1. FLUOXETINE [Suspect]
     Indication: DEPRESSION
     Dosage: UNK, UNK
     Dates: start: 20051001
  2. FLUOXETINE [Suspect]
     Dosage: UNK, UNK
     Route: 048
     Dates: start: 20081118
  3. FLUOXETINE [Suspect]
     Dosage: 20 MG, DAILY (1/D)
     Route: 048
  4. CLOZARIL [Concomitant]
     Indication: SCHIZOPHRENIA
     Dosage: 450 MG, DAILY (1/D)
     Route: 065
     Dates: start: 20031120, end: 20080701
  5. CLOZARIL [Concomitant]
     Dosage: 350 MG, DAILY (1/D)
     Route: 065
     Dates: start: 20080701
  6. CLOZARIL [Concomitant]
     Dosage: 300 MG, DAILY (1/D)
     Route: 065
  7. AMISULPRIDE [Concomitant]
     Route: 048
     Dates: start: 20061201
  8. LACTULOSE [Concomitant]
     Indication: CONSTIPATION
     Route: 048

REACTIONS (4)
  - ANTIPSYCHOTIC DRUG LEVEL INCREASED [None]
  - DIZZINESS [None]
  - ELECTROCARDIOGRAM QT PROLONGED [None]
  - VENTRICULAR EXTRASYSTOLES [None]
